FAERS Safety Report 6393286-8 (Version None)
Quarter: 2009Q4

REPORT INFORMATION
  Report Type: 
  Country: None (occurrence: None)
  Receive Date: 20091008
  Receipt Date: 20090819
  Transmission Date: 20100525
  Serious: No
  Sender: FDA-Public Use
  Company Number: US-BAYER-200930470NA

PATIENT
  Sex: Female

DRUGS (1)
  1. OCELLA [Suspect]
     Indication: MENSTRUATION IRREGULAR

REACTIONS (3)
  - ABDOMINAL PAIN [None]
  - MENORRHAGIA [None]
  - MENSTRUATION IRREGULAR [None]
